FAERS Safety Report 7304240-3 (Version None)
Quarter: 2011Q1

REPORT INFORMATION
  Report Type: 
  Country: None (occurrence: None)
  Receive Date: 20110221
  Receipt Date: 20110208
  Transmission Date: 20110831
  Serious: No
  Sender: FDA-Public Use
  Company Number: US-BAYER-2011-013046

PATIENT
  Sex: Female

DRUGS (2)
  1. MIRENA [Suspect]
     Indication: CONTRACEPTION
     Dosage: 20 ?G/D, CONT
     Route: 015
     Dates: start: 20080101
  2. MIRENA [Suspect]
     Indication: MENORRHAGIA

REACTIONS (4)
  - MENORRHAGIA [None]
  - PAIN [None]
  - DEVICE DISLOCATION [None]
  - HYPOMENORRHOEA [None]
